FAERS Safety Report 8301917-8 (Version None)
Quarter: 2012Q2

REPORT INFORMATION
  Report Type: 
  Country: None (occurrence: None)
  Receive Date: 20120418
  Receipt Date: 20120411
  Transmission Date: 20120825
  Serious: Yes (Death, Other)
  Sender: FDA-Public Use
  Company Number: ADR-2012-00713

PATIENT
  Sex: Male

DRUGS (2)
  1. LIORESAL [Suspect]
     Indication: MUSCLE SPASTICITY
     Dosage: SEE IMAGE
  2. LIORESAL [Suspect]
     Indication: CEREBRAL PALSY
     Dosage: SEE IMAGE

REACTIONS (1)
  - ACUTE RESPIRATORY DISTRESS SYNDROME [None]
